FAERS Safety Report 4866440-1 (Version None)
Quarter: 2005Q4

REPORT INFORMATION
  Report Type: 
  Country: None (occurrence: None)
  Receive Date: 20051227
  Receipt Date: 20051024
  Transmission Date: 20060501
  Serious: Yes (Hospitalization)
  Sender: FDA-Public Use
  Company Number: 2005CG01767

PATIENT
  Age: 28003 Day
  Sex: Male
  Weight: 81 kg

DRUGS (14)
  1. XYLOCAINE [Suspect]
     Indication: NEURALGIA
     Route: 042
     Dates: start: 20051022
  2. XYLOCAINE [Suspect]
     Route: 042
     Dates: start: 20051022, end: 20051023
  3. XYLOCAINE [Suspect]
     Route: 042
     Dates: start: 20051023, end: 20051024
  4. MOPRAL [Concomitant]
  5. MORPHINE SULFATE [Concomitant]
     Route: 048
  6. DURAGESIC-100 [Concomitant]
     Route: 061
  7. VOLTAREN [Concomitant]
     Route: 048
  8. MORPHINE [Concomitant]
     Indication: PROCEDURAL PAIN
     Route: 042
     Dates: start: 20051021, end: 20051021
  9. MORPHINE [Concomitant]
     Route: 042
     Dates: start: 20051021, end: 20051023
  10. KETAMINE [Concomitant]
     Indication: PROCEDURAL PAIN
     Route: 042
     Dates: start: 20051021, end: 20051023
  11. PERFALGAN [Concomitant]
     Indication: PROCEDURAL PAIN
     Dates: start: 20051021, end: 20051023
  12. PROFENID [Concomitant]
     Indication: PROCEDURAL PAIN
     Dates: start: 20051021
  13. NEURONTIN [Concomitant]
     Indication: PROCEDURAL PAIN
     Route: 048
     Dates: start: 20051022
  14. CATAPRES [Concomitant]
     Indication: PROCEDURAL PAIN
     Route: 048
     Dates: start: 20051022

REACTIONS (5)
  - CONFUSIONAL STATE [None]
  - CONVULSION [None]
  - MYOCLONUS [None]
  - OFF LABEL USE [None]
  - PRESCRIBED OVERDOSE [None]
